FAERS Safety Report 7973261-X (Version None)
Quarter: 2011Q4

REPORT INFORMATION
  Report Type: 
  Country: None (occurrence: None)
  Receive Date: 20111213
  Receipt Date: 20111203
  Transmission Date: 20120403
  Serious: Yes (Other)
  Sender: FDA-Public Use
  Company Number: PHEH2011US011007

PATIENT
  Sex: Female

DRUGS (1)
  1. EXJADE [Suspect]
     Dosage: 1500 MG, QD
     Route: 048

REACTIONS (6)
  - PYREXIA [None]
  - ORAL INFECTION [None]
  - CHILLS [None]
  - HEADACHE [None]
  - RASH PRURITIC [None]
  - ASTHMA [None]
